FAERS Safety Report 9562342 (Version 3)
Quarter: 2013Q4

REPORT INFORMATION
  Report Type: Report from Study
  Country: JP (occurrence: JP)
  Receive Date: 20130927
  Receipt Date: 20131217
  Transmission Date: 20140711
  Serious: Yes (Other)
  Sender: FDA-Public Use
  Company Number: JP-SANOFI-AVENTIS-THYM-1003964

PATIENT
  Age: 5 Year
  Sex: Male
  Weight: 17 kg

DRUGS (7)
  1. THYMOGLOBULIN [Suspect]
     Indication: APLASTIC ANAEMIA
     Dosage: 60 MG, QD
     Route: 065
     Dates: start: 20120614, end: 20120618
  2. THYMOGLOBULIN [Suspect]
     Indication: APLASTIC ANAEMIA
  3. VANCOMYCIN [Suspect]
     Indication: DEVICE RELATED SEPSIS
     Dosage: UNK
     Route: 065
     Dates: start: 20120820, end: 20120831
  4. METHYLPREDNISOLONE SODIUM SUCCINATE [Concomitant]
     Indication: PROPHYLAXIS
     Dosage: UNK
     Route: 065
     Dates: start: 20120614
  5. DEXCHLORPHENIRAMINE MALEATE [Concomitant]
     Indication: PROPHYLAXIS
     Dosage: UNK
     Route: 065
     Dates: start: 20120615, end: 20120618
  6. RED BLOOD CELLS [Concomitant]
     Indication: ANAEMIA
     Dates: start: 20120526, end: 20130313
  7. PLATELETS, HUMAN BLOOD [Concomitant]
     Indication: PLATELET COUNT DECREASED
     Dates: start: 20120605, end: 20130327

REACTIONS (4)
  - Generalised erythema [Recovered/Resolved]
  - Renal impairment [Recovered/Resolved]
  - Device related sepsis [Recovering/Resolving]
  - Pyrexia [Recovered/Resolved]
